FAERS Safety Report 4981891-2 (Version None)
Quarter: 2006Q2

REPORT INFORMATION
  Report Type: 
  Country: None (occurrence: None)
  Receive Date: 20060424
  Receipt Date: 20060424
  Transmission Date: 20061013
  Serious: Yes (Hospitalization)
  Sender: FDA-Public Use
  Company Number: None

PATIENT
  Sex: Female
  Weight: 73.4827 kg

DRUGS (12)
  1. ERBITUX [Suspect]
     Indication: LARYNGEAL NEOPLASM
     Dosage: 250 MG/M2 (450 MG) EVERY WEEK  IV
     Route: 042
     Dates: start: 20060321
  2. ERBITUX [Suspect]
     Indication: SQUAMOUS CELL CARCINOMA
     Dosage: 250 MG/M2 (450 MG) EVERY WEEK  IV
     Route: 042
     Dates: start: 20060321
  3. ERBITUX [Suspect]
     Indication: LARYNGEAL NEOPLASM
     Dosage: 250 MG/M2 (450 MG) EVERY WEEK  IV
     Route: 042
     Dates: start: 20060328
  4. ERBITUX [Suspect]
     Indication: SQUAMOUS CELL CARCINOMA
     Dosage: 250 MG/M2 (450 MG) EVERY WEEK  IV
     Route: 042
     Dates: start: 20060328
  5. ERBITUX [Suspect]
     Indication: LARYNGEAL NEOPLASM
     Dosage: 250 MG/M2 (450 MG) EVERY WEEK  IV
     Route: 042
     Dates: start: 20060404
  6. ERBITUX [Suspect]
     Indication: SQUAMOUS CELL CARCINOMA
     Dosage: 250 MG/M2 (450 MG) EVERY WEEK  IV
     Route: 042
     Dates: start: 20060404
  7. ERBITUX [Suspect]
     Indication: LARYNGEAL NEOPLASM
     Dosage: 250 MG/M2 (450 MG) EVERY WEEK  IV
     Route: 042
     Dates: start: 20060411
  8. ERBITUX [Suspect]
     Indication: SQUAMOUS CELL CARCINOMA
     Dosage: 250 MG/M2 (450 MG) EVERY WEEK  IV
     Route: 042
     Dates: start: 20060411
  9. ERBITUX [Suspect]
     Indication: LARYNGEAL NEOPLASM
     Dosage: 250 MG/M2 (450 MG) EVERY WEEK  IV
     Route: 042
     Dates: start: 20060418
  10. ERBITUX [Suspect]
     Indication: SQUAMOUS CELL CARCINOMA
     Dosage: 250 MG/M2 (450 MG) EVERY WEEK  IV
     Route: 042
     Dates: start: 20060418
  11. PEMETREXED [Suspect]
     Indication: SQUAMOUS CELL CARCINOMA
     Dosage: 350MG/M2 (630MG) (X2) ON 3/21/06 + 4/11/06  IV
     Route: 042
     Dates: start: 20060321
  12. PEMETREXED [Suspect]
     Indication: SQUAMOUS CELL CARCINOMA
     Dosage: 350MG/M2 (630MG) (X2) ON 3/21/06 + 4/11/06  IV
     Route: 042
     Dates: start: 20060411

REACTIONS (2)
  - DYSPHASIA [None]
  - MUCOSAL INFLAMMATION [None]
